FAERS Safety Report 6127579-6 (Version None)
Quarter: 2009Q1

REPORT INFORMATION
  Report Type: 
  Country: None (occurrence: None)
  Receive Date: 20090323
  Receipt Date: 20090310
  Transmission Date: 20090719
  Serious: Yes (Other)
  Sender: FDA-Public Use
  Company Number: US-BIOGENIDEC-2008BI029528

PATIENT
  Age: 51 Year
  Sex: Female

DRUGS (9)
  1. TYSABRI [Suspect]
     Indication: MULTIPLE SCLEROSIS
     Route: 042
     Dates: start: 20080421
  2. LEXAPRO [Concomitant]
     Indication: DEPRESSION
  3. TEGRETOL [Concomitant]
     Indication: NEURALGIA
  4. KLONOPIN [Concomitant]
     Indication: RESTLESS LEGS SYNDROME
  5. LYRICA [Concomitant]
  6. ADVIL [Concomitant]
  7. AMANTADINE HCL [Concomitant]
  8. EXCEDRIN [Concomitant]
  9. MIRAPEX [Concomitant]

REACTIONS (1)
  - CHRONIC LYMPHOCYTIC LEUKAEMIA [None]
